FAERS Safety Report 6685358-5 (Version None)
Quarter: 2010Q2

REPORT INFORMATION
  Report Type: 
  Country: None (occurrence: None)
  Receive Date: 20100416
  Receipt Date: 20090715
  Transmission Date: 20101027
  Serious: No
  Sender: FDA-Public Use
  Company Number: US-AMGEN-KDL356028

PATIENT
  Sex: Male

DRUGS (1)
  1. SENSIPAR [Suspect]
     Indication: HYPERPARATHYROIDISM SECONDARY
     Dates: end: 20090715

REACTIONS (4)
  - BLOOD PARATHYROID HORMONE INCREASED [None]
  - COUGH [None]
  - INCREASED UPPER AIRWAY SECRETION [None]
  - MUSCLE SPASMS [None]
